FAERS Safety Report 4600231-1 (Version None)
Quarter: 2005Q1

REPORT INFORMATION
  Report Type: 
  Country: None (occurrence: None)
  Receive Date: 20050307
  Receipt Date: 20050223
  Transmission Date: 20050727
  Serious: Yes (Hospitalization, Other)
  Sender: FDA-Public Use
  Company Number: US-BRISTOL-MYERS SQUIBB COMPANY-12872933

PATIENT
  Age: 62 Year
  Sex: Male
  Weight: 84 kg

DRUGS (11)
  1. CARBOPLATIN [Suspect]
     Indication: NEUROENDOCRINE CARCINOMA
     Dosage: INITIAL DOSE: 04-JAN-2005; 6 AUC ADMINISTERED ON DAY 2
     Route: 042
     Dates: start: 20050215, end: 20050215
  2. PACLITAXEL [Suspect]
     Indication: NEUROENDOCRINE CARCINOMA
     Dosage: INITIAL DOSE: 04-JAN-2005; 200 MG/M2 ADMINISTERED ON DAY 2
     Route: 042
     Dates: start: 20050215, end: 20050215
  3. ETOPOSIDE [Suspect]
     Indication: NEUROENDOCRINE CARCINOMA
     Dosage: 50 MG ALTERNATING WITH 100 MG DAILY X 10  INITIAL DOSE: 04-JAN-2005
     Route: 048
     Dates: start: 20050216, end: 20050216
  4. ATENOLOL [Concomitant]
     Indication: HYPERTENSION
     Dates: start: 20010301
  5. ZOCOR [Concomitant]
     Indication: HYPERLIPIDAEMIA
     Dosage: AT BEDTIME
     Dates: start: 20040301
  6. IMIPRAMINE HCL [Concomitant]
     Indication: INSOMNIA
     Dosage: AT BETIME
     Dates: start: 20020301
  7. AMBIEN [Concomitant]
     Indication: INSOMNIA
     Dosage: AT BEDTIME
     Dates: start: 20050101
  8. GLUCOPHAGE [Concomitant]
     Indication: DIABETES MELLITUS
     Dates: start: 20020301
  9. DURAGESIC-100 [Concomitant]
     Indication: PAIN
     Dates: start: 20041201
  10. PERCOCET [Concomitant]
     Indication: PAIN
     Dosage: 2.5/325 EVERY 4 HOURS AS NEEDED
     Dates: start: 20050101
  11. ROXANOL [Concomitant]
     Indication: PAIN
     Dosage: 0.5 - 1 CC EVERY 2 HOURS AS NEEDED
     Route: 048
     Dates: start: 20050201

REACTIONS (5)
  - ABDOMINAL PAIN [None]
  - BACTERAEMIA [None]
  - CHILLS [None]
  - LIVER FUNCTION TEST ABNORMAL [None]
  - PYREXIA [None]
